FAERS Safety Report 17274202 (Version 1)
Quarter: 2020Q1

REPORT INFORMATION
  Report Type: Spontaneous
  Country: US (occurrence: US)
  Receive Date: 20200115
  Receipt Date: 20200115
  Transmission Date: 20200409
  Serious: No
  Sender: FDA-Public Use
  Company Number: US-AMNEAL PHARMACEUTICALS-2019-AMRX-02428

PATIENT
  Sex: Female
  Weight: 68 kg

DRUGS (2)
  1. YAZ [Concomitant]
     Active Substance: DROSPIRENONE\ETHINYL ESTRADIOL
     Indication: CONTRACEPTION
     Dosage: UNK UNK, QD
     Route: 048
     Dates: start: 20190530
  2. ISOTRETINOIN. [Suspect]
     Active Substance: ISOTRETINOIN
     Indication: ACNE
     Dosage: 30 MILLIGRAM, BID
     Route: 065
     Dates: start: 20190919, end: 20191022

REACTIONS (4)
  - Epistaxis [Recovered/Resolved]
  - Contusion [Recovered/Resolved]
  - Chromaturia [Recovered/Resolved]
  - Nail bed disorder [Recovered/Resolved]

NARRATIVE: CASE EVENT DATE: 2019
